FAERS Safety Report 9788687 (Version 2)
Quarter: 2013Q4

REPORT INFORMATION
  Report Type: Report from Study
  Country: IT (occurrence: IT)
  Receive Date: 20131230
  Receipt Date: 20131230
  Transmission Date: 20140711
  Serious: Yes (Hospitalization)
  Sender: FDA-Public Use
  Company Number: IT-BAYER-2013-146546

PATIENT
  Age: 76 Year
  Sex: Male
  Weight: 80 kg

DRUGS (19)
  1. REGORAFENIB [Suspect]
     Indication: HEPATOCELLULAR CARCINOMA
     Dosage: UNK
     Route: 048
     Dates: start: 20131022, end: 20131122
  2. REGORAFENIB [Suspect]
     Indication: HEPATOCELLULAR CARCINOMA
     Dosage: UNK
     Route: 048
     Dates: start: 20131022, end: 20131122
  3. REGORAFENIB [Suspect]
     Indication: HEPATOCELLULAR CARCINOMA
     Dosage: UNK
     Route: 048
     Dates: start: 20131022, end: 20131122
  4. REGORAFENIB [Suspect]
     Indication: HEPATOCELLULAR CARCINOMA
     Dosage: UNK
     Route: 048
     Dates: start: 20131122
  5. REGORAFENIB [Suspect]
     Indication: HEPATOCELLULAR CARCINOMA
     Dosage: UNK
     Route: 048
     Dates: start: 20131122
  6. REGORAFENIB [Suspect]
     Indication: HEPATOCELLULAR CARCINOMA
     Dosage: UNK
     Route: 048
     Dates: start: 20131122
  7. REGORAFENIB [Suspect]
     Indication: HEPATOCELLULAR CARCINOMA
     Dosage: 160 MG, QD
     Route: 048
     Dates: start: 20131028, end: 20131117
  8. REGORAFENIB [Suspect]
     Indication: HEPATOCELLULAR CARCINOMA
     Dosage: 160 MG, QD
     Route: 048
     Dates: start: 20131125, end: 20131126
  9. REGORAFENIB [Suspect]
     Indication: HEPATOCELLULAR CARCINOMA
     Dosage: 120 MG, QD
     Route: 048
     Dates: start: 20131209
  10. TRIATEC [Concomitant]
     Indication: HYPERTENSION
     Dosage: 5 MG, QD
     Route: 048
     Dates: start: 20131106, end: 20131126
  11. NORVASC [Concomitant]
     Indication: HYPERTENSION
     Dosage: 5MG OD
     Route: 048
     Dates: start: 20131031
  12. CARDIOASPIRIN [Concomitant]
     Indication: HYPERTENSION
     Dosage: UNK
     Route: 048
     Dates: start: 20120927
  13. LOBIVON [Concomitant]
     Indication: HYPERTENSION
     Dosage: 5MG OD
     Route: 048
     Dates: start: 20120927
  14. LANSOX [Concomitant]
     Indication: PROPHYLAXIS
     Dosage: 30MG OD
     Route: 048
  15. ROCALTROL [Concomitant]
     Indication: HYPOPHOSPHATAEMIA
     Dosage: 0.25MG ONE DAY ON ONE DAY OFF
     Route: 048
     Dates: start: 20130917
  16. ZYLORIC [Concomitant]
     Indication: PROPHYLAXIS
     Dosage: 150MG OD
     Route: 048
     Dates: start: 20120927
  17. MAG 2 [Concomitant]
     Indication: BLOOD MAGNESIUM DECREASED
     Dosage: 2.250G OD
     Route: 048
     Dates: start: 20131022
  18. UREA [Concomitant]
     Indication: PALMAR-PLANTAR ERYTHRODYSAESTHESIA SYNDROME
     Dosage: UNK UNK, BID
     Route: 061
     Dates: start: 20131031
  19. CALCIUM PHOSPHATE [Concomitant]
     Indication: HYPOPHOSPHATAEMIA
     Dosage: 300 MG, QD
     Route: 048
     Dates: start: 20121002

REACTIONS (1)
  - Atrial fibrillation [Recovered/Resolved]
